FAERS Safety Report 16829745 (Version 1)
Quarter: 2019Q3

REPORT INFORMATION
  Report Type: Spontaneous
  Country: US (occurrence: US)
  Receive Date: 20190919
  Receipt Date: 20190919
  Transmission Date: 20191005
  Serious: No
  Sender: FDA-Public Use
  Company Number: US-TEVA-2019-US-1108870

PATIENT
  Age: 65 Year
  Sex: Female

DRUGS (12)
  1. ESTRIOL [Concomitant]
     Active Substance: ESTRIOL
     Route: 065
  2. MAGNESIUM ELFURINATE [Concomitant]
     Route: 065
  3. MELATONIN [Concomitant]
     Active Substance: MELATONIN
     Route: 065
  4. VITAMIN K 2 [Concomitant]
     Route: 065
  5. FISH OIL [Concomitant]
     Active Substance: FISH OIL
     Route: 065
  6. SOTALOL HYDROCHLORIDE TABLET [Suspect]
     Active Substance: SOTALOL HYDROCHLORIDE
     Indication: ATRIAL FIBRILLATION
     Route: 065
     Dates: start: 20190821
  7. NUTRIENT 950 [Concomitant]
     Active Substance: MINERALS\VITAMINS
     Route: 065
  8. LODORAL [Concomitant]
     Route: 065
  9. COENZYME Q10 [Concomitant]
     Active Substance: UBIDECARENONE
     Route: 065
  10. TOCOTRIENOLS [Concomitant]
     Route: 065
  11. VITAMIN D3 [Concomitant]
     Active Substance: CHOLECALCIFEROL
     Route: 065
  12. ASCORBYL PALIMITATE [Concomitant]
     Route: 065

REACTIONS (3)
  - Nausea [Recovering/Resolving]
  - Dizziness [Recovering/Resolving]
  - Fatigue [Recovering/Resolving]

NARRATIVE: CASE EVENT DATE: 20190827
